FAERS Safety Report 13986451 (Version 1)
Quarter: 2017Q3

REPORT INFORMATION
  Report Type: Report from Study
  Country: US (occurrence: US)
  Receive Date: 20170919
  Receipt Date: 20170919
  Transmission Date: 20171128
  Serious: No
  Sender: FDA-Public Use
  Company Number: PHEH2017US029996

PATIENT
  Sex: Female
  Weight: 83.91 kg

DRUGS (2)
  1. COSENTYX [Suspect]
     Active Substance: SECUKINUMAB
     Indication: PSORIASIS
     Dosage: 300 MG, QMO
     Route: 058
  2. COSENTYX [Suspect]
     Active Substance: SECUKINUMAB
     Indication: DERMATITIS

REACTIONS (6)
  - Pain [Unknown]
  - Skin fissures [Unknown]
  - Therapeutic response unexpected [Recovering/Resolving]
  - Skin haemorrhage [Unknown]
  - Product use in unapproved indication [Unknown]
  - Myalgia [Unknown]
